FAERS Safety Report 6024220-8 (Version None)
Quarter: 2008Q4

REPORT INFORMATION
  Report Type: 
  Country: None (occurrence: None)
  Receive Date: 20081224
  Receipt Date: 20081219
  Transmission Date: 20090506
  Serious: Yes (Hospitalization)
  Sender: FDA-Public Use
  Company Number: 233034K08USA

PATIENT
  Age: 56 Year
  Sex: Male

DRUGS (5)
  1. REBIF [Suspect]
     Indication: MULTIPLE SCLEROSIS
     Dosage: 44 MCG, 3 IN 1 WEEKS, SUBCUTANEOUS
     Route: 058
     Dates: start: 20080805
  2. PROZAC [Concomitant]
  3. VALIUM [Concomitant]
  4. UNSPECIFIED GLAUCOMA MEDICATION(ALL OTHER THERAPEUTIC PRODUCTS) [Concomitant]
  5. UNSPECIFIED HOMEOPATHICS(HOMEOPATIC PREPARATION) [Concomitant]

REACTIONS (3)
  - DEPRESSION [None]
  - LOSS OF EMPLOYMENT [None]
  - SUICIDAL IDEATION [None]
